FAERS Safety Report 19814863 (Version 2)
Quarter: 2021Q3

REPORT INFORMATION
  Report Type: Spontaneous
  Country: US (occurrence: US)
  Receive Date: 20210910
  Receipt Date: 20210913
  Transmission Date: 20211014
  Serious: Yes (Other)
  Sender: FDA-Public Use
  Company Number: US-PURDUE-USA-2021-0283272

PATIENT
  Sex: Male

DRUGS (1)
  1. COLACE CLEAR [Suspect]
     Active Substance: DOCUSATE SODIUM
     Indication: CONSTIPATION
     Dosage: 2 CAPSL, UNK
     Route: 048

REACTIONS (3)
  - Product leakage [Unknown]
  - Foreign body in throat [Unknown]
  - Product use complaint [Unknown]
